FAERS Safety Report 10102590 (Version 2)
Quarter: 2014Q2

REPORT INFORMATION
  Report Type: Other
  Country: US (occurrence: US)
  Receive Date: 20140424
  Receipt Date: 20140610
  Transmission Date: 20141212
  Serious: Yes (Hospitalization, Other)
  Sender: FDA-Public Use
  Company Number: US-GSKPPD-2014GSK000245

PATIENT
  Age: 59 Year
  Sex: Female

DRUGS (7)
  1. AVANDIA [Suspect]
     Indication: DIABETES MELLITUS
     Dosage: AVANDIA WAS NOT LISTED AMONG THE PATIENT^S ADMISSION/DISCHARGE RECORDS
     Route: 048
  2. ASPIRIN [Concomitant]
     Route: 048
  3. HYDROCHLOROTHIAZIDE [Concomitant]
  4. ZOCOR [Concomitant]
  5. VERAPAMIL [Concomitant]
  6. TOPROL [Concomitant]
     Dosage: TOPROL XL
  7. NITROGLYCERIN [Concomitant]
     Dosage: TREATMENT MEDICATION

REACTIONS (2)
  - Coronary artery occlusion [None]
  - Coronary artery disease [None]
